FAERS Safety Report 8910696 (Version 1)
Quarter: 2012Q4

REPORT INFORMATION
  Report Type: Spontaneous
  Country: MX (occurrence: None)
  Receive Date: 20121113
  Receipt Date: 20121113
  Transmission Date: 20130627
  Serious: Yes (Other)
  Sender: FDA-Public Use
  Company Number: ENTC2012-0510

PATIENT
  Age: 89 Year
  Sex: Female

DRUGS (3)
  1. STALEVO (LEVODOPA, CARBIDOPA, ENTACAPONE) [Suspect]
     Indication: PARKINSON^S DISEASE
     Dosage: 1 tablet (37.5/150/200 mg) per day
     Dates: start: 201001
  2. MICARDIS [Concomitant]
  3. NORVAS [Concomitant]

REACTIONS (4)
  - Nausea [None]
  - Fall [None]
  - Humerus fracture [None]
  - Joint dislocation [None]
